FAERS Safety Report 24928908 (Version 1)
Quarter: 2025Q1

REPORT INFORMATION
  Report Type: Spontaneous
  Country: US (occurrence: US)
  Receive Date: 20250205
  Receipt Date: 20250205
  Transmission Date: 20250408
  Serious: No
  Sender: pharmaAND
  Company Number: US-Pharmaand-2024000808

PATIENT
  Age: 68 Year
  Sex: Female

DRUGS (1)
  1. RUBRACA [Suspect]
     Active Substance: RUCAPARIB CAMSYLATE
     Indication: Ovarian cancer
     Dosage: 300 MG TWICE DAILY
     Route: 048
     Dates: start: 20230124, end: 20240812

REACTIONS (1)
  - Laboratory test abnormal [Unknown]
